FAERS Safety Report 9468349 (Version 4)
Quarter: 2016Q2

REPORT INFORMATION
  Report Type: Spontaneous
  Country: US (occurrence: US)
  Receive Date: 20130821
  Receipt Date: 20160419
  Transmission Date: 20160815
  Serious: No
  Sender: FDA-Public Use
  Company Number: US-PFIZER INC-2013240532

PATIENT
  Age: 75 Year
  Sex: Female
  Weight: 49.89 kg

DRUGS (4)
  1. LYRICA [Suspect]
     Active Substance: PREGABALIN
     Indication: SKELETAL INJURY
  2. LYRICA [Suspect]
     Active Substance: PREGABALIN
     Indication: BURNING SENSATION
  3. LYRICA [Suspect]
     Active Substance: PREGABALIN
     Indication: SCIATICA
  4. LYRICA [Suspect]
     Active Substance: PREGABALIN
     Indication: POOR PERIPHERAL CIRCULATION
     Dosage: UNK
     Dates: start: 201307

REACTIONS (7)
  - Dry mouth [Unknown]
  - Product use issue [Unknown]
  - Constipation [Unknown]
  - Migraine [Unknown]
  - Headache [Unknown]
  - Therapeutic response unexpected [Unknown]
  - Dizziness [Unknown]

NARRATIVE: CASE EVENT DATE: 2013
